FAERS Safety Report 16775548 (Version 6)
Quarter: 2022Q1

REPORT INFORMATION
  Report Type: Spontaneous
  Country: IN (occurrence: IN)
  Receive Date: 20190905
  Receipt Date: 20220209
  Transmission Date: 20220424
  Serious: Yes (Other)
  Sender: FDA-Public Use
  Company Number: IN-PFIZER INC-2019003616

PATIENT
  Age: 55 Year
  Sex: Male
  Weight: 87 kg

DRUGS (4)
  1. SUTENT [Suspect]
     Active Substance: SUNITINIB MALATE
     Indication: Metastatic renal cell carcinoma
     Dosage: 50 MG, CYCLIC (DAILY 2 WEEKS ON AND 1 WEEK OFF)
     Route: 048
     Dates: start: 20190102, end: 2019
  2. SUTENT [Suspect]
     Active Substance: SUNITINIB MALATE
     Dosage: 37.5 MG, CYCLIC (15 DAYS AND 1 WEEK OFF)
     Route: 048
     Dates: start: 2019, end: 2019
  3. SUTENT [Suspect]
     Active Substance: SUNITINIB MALATE
     Dosage: 25 MG, CYCLIC (2 WEEKS ON AND 1 WEEK OFF)
     Route: 048
  4. SUTENT [Suspect]
     Active Substance: SUNITINIB MALATE
     Dosage: 37.5 MG DAILY (28 DAYS)

REACTIONS (4)
  - Fracture [Unknown]
  - Blood pressure increased [Unknown]
  - Back pain [Unknown]
  - Skin exfoliation [Unknown]

NARRATIVE: CASE EVENT DATE: 20190101
